FAERS Safety Report 4996915-6 (Version None)
Quarter: 2006Q2

REPORT INFORMATION
  Report Type: 
  Country: None (occurrence: None)
  Receive Date: 20060509
  Receipt Date: 20060426
  Transmission Date: 20061013
  Serious: Yes (Disabling, Other)
  Sender: FDA-Public Use
  Company Number: GB-GLAXOSMITHKLINE-B0421377A

PATIENT
  Age: 49 Year
  Sex: Male

DRUGS (2)
  1. PAROXETINE [Suspect]
     Dosage: 20MG PER DAY
     Route: 048
     Dates: start: 20030901
  2. ALCOHOL [Concomitant]
     Route: 065
     Dates: start: 20050316

REACTIONS (4)
  - DRUG WITHDRAWAL SYNDROME [None]
  - IMPAIRED DRIVING ABILITY [None]
  - IRRITABILITY [None]
  - ROAD TRAFFIC ACCIDENT [None]
